FAERS Safety Report 6395922-9 (Version None)
Quarter: 2009Q4

REPORT INFORMATION
  Report Type: 
  Country: None (occurrence: None)
  Receive Date: 20091009
  Receipt Date: 20090903
  Transmission Date: 20100525
  Serious: No
  Sender: FDA-Public Use
  Company Number: A0805810A

PATIENT
  Age: 51 Year
  Sex: Female

DRUGS (9)
  1. TYKERB [Suspect]
     Indication: BREAST CANCER
     Dosage: 5TAB PER DAY
     Route: 048
     Dates: start: 20090827
  2. XELODA [Concomitant]
  3. PRILOSEC [Concomitant]
  4. VITAMINS [Concomitant]
  5. ALFALFA [Concomitant]
  6. MULTI-VITAMIN [Concomitant]
  7. VITAMIN B COMPLEX CAP [Concomitant]
  8. CALCIUM [Concomitant]
  9. VITAMIN D3 [Concomitant]

REACTIONS (1)
  - DRY SKIN [None]
